FAERS Safety Report 21843341 (Version 1)
Quarter: 2023Q1

REPORT INFORMATION
  Report Type: Spontaneous
  Country: US (occurrence: US)
  Receive Date: 20230110
  Receipt Date: 20230110
  Transmission Date: 20230418
  Serious: Yes (Other)
  Sender: FDA-Public Use
  Company Number: US-PARI RESPIRATORY EQUIPMENT, INC.-2022PAR00020

PATIENT
  Age: 4 Year
  Sex: Female

DRUGS (2)
  1. KITABIS PAK [Suspect]
     Active Substance: TOBRAMYCIN
     Indication: Cystic fibrosis
     Dosage: 300 MG/5 ML (1 VIAL) VIA NEBULIZER, 2X/DAY EVERY OTHER MONTH
     Dates: start: 20180427
  2. KITABIS PAK [Suspect]
     Active Substance: TOBRAMYCIN
     Indication: Lung disorder

REACTIONS (2)
  - Dyspnoea [Unknown]
  - Off label use [Recovered/Resolved]

NARRATIVE: CASE EVENT DATE: 20180427
